FAERS Safety Report 19040666 (Version 1)
Quarter: 2021Q1

REPORT INFORMATION
  Report Type: Spontaneous
  Country: US (occurrence: US)
  Receive Date: 20210323
  Receipt Date: 20210323
  Transmission Date: 20210420
  Serious: Yes (Hospitalization)
  Sender: FDA-Public Use
  Company Number: US-HIKMA PHARMACEUTICALS USA INC.-US-H14001-21-01290

PATIENT
  Age: 35 Year
  Sex: Female

DRUGS (2)
  1. IMATINIB. [Suspect]
     Active Substance: IMATINIB MESYLATE
     Indication: AMYOTROPHIC LATERAL SCLEROSIS
     Dosage: UNKNOWN
     Route: 065
  2. IMATINIB. [Suspect]
     Active Substance: IMATINIB MESYLATE
     Indication: CHRONIC MYELOID LEUKAEMIA

REACTIONS (5)
  - Muscle spasms [Unknown]
  - Fall [Unknown]
  - Musculoskeletal stiffness [Unknown]
  - Toxicity to various agents [Unknown]
  - Muscular weakness [Unknown]
